FAERS Safety Report 9124016 (Version 1)
Quarter: 2013Q1

REPORT INFORMATION
  Report Type: Spontaneous
  Country: US (occurrence: US)
  Receive Date: 20130227
  Receipt Date: 20130227
  Transmission Date: 20140127
  Serious: Yes (Hospitalization)
  Sender: FDA-Public Use
  Company Number: US-ELI_LILLY_AND_COMPANY-US201301009520

PATIENT
  Age: 61 Year
  Sex: Female

DRUGS (2)
  1. ALIMTA [Suspect]
     Indication: NON-SMALL CELL LUNG CANCER
     Dosage: 500 MG, UNK
     Route: 042
     Dates: start: 20121217
  2. CARBOPLATIN [Concomitant]
     Indication: NON-SMALL CELL LUNG CANCER
     Dosage: UNK
     Route: 042
     Dates: start: 20121217

REACTIONS (11)
  - Vision blurred [Recovered/Resolved]
  - Photophobia [Recovered/Resolved]
  - Eye pruritus [Recovered/Resolved]
  - Face oedema [Not Recovered/Not Resolved]
  - Periorbital oedema [Unknown]
  - Eye discharge [Recovered/Resolved]
  - Lacrimation increased [Recovered/Resolved]
  - Ear pain [Recovered/Resolved]
  - Middle ear effusion [Unknown]
  - Lip swelling [Not Recovered/Not Resolved]
  - Off label use [Unknown]
